FAERS Safety Report 7363860-0 (Version None)
Quarter: 2011Q1

REPORT INFORMATION
  Report Type: 
  Country: None (occurrence: None)
  Receive Date: 20110321
  Receipt Date: 20110316
  Transmission Date: 20110831
  Serious: Yes (Other)
  Sender: FDA-Public Use
  Company Number: GR-PFIZER INC-2011058517

PATIENT
  Sex: Male

DRUGS (2)
  1. XANAX [Suspect]
     Indication: STRESS
     Dosage: 0.25 MG, 1X/DAY
     Route: 048
  2. XANAX [Suspect]
     Indication: INSOMNIA

REACTIONS (2)
  - IMPAIRED DRIVING ABILITY [None]
  - IMPAIRED WORK ABILITY [None]
